FAERS Safety Report 12374446 (Version 1)
Quarter: 2016Q2

REPORT INFORMATION
  Report Type: Spontaneous
  Country: US (occurrence: None)
  Receive Date: 20160516
  Receipt Date: 20160516
  Transmission Date: 20160815
  Serious: Yes (Other)
  Sender: FDA-Public Use
  Company Number: None

PATIENT
  Age: 49 Year
  Sex: Male
  Weight: 60.33 kg

DRUGS (1)
  1. YONDELIS [Suspect]
     Active Substance: TRABECTEDIN
     Indication: LIPOSARCOMA
     Route: 042
     Dates: start: 20160316

REACTIONS (19)
  - Muscle spasms [None]
  - Vomiting [None]
  - Hypoaesthesia [None]
  - Unevaluable event [None]
  - Tongue blistering [None]
  - Hot flush [None]
  - Diarrhoea [None]
  - Memory impairment [None]
  - Weight increased [None]
  - Decreased appetite [None]
  - Feeling cold [None]
  - Gastric disorder [None]
  - Night sweats [None]
  - Initial insomnia [None]
  - Malaise [None]
  - Pain in extremity [None]
  - Headache [None]
  - Vision blurred [None]
  - Rhinorrhoea [None]

NARRATIVE: CASE EVENT DATE: 20160316
